FAERS Safety Report 5571215-4 (Version None)
Quarter: 2007Q4

REPORT INFORMATION
  Report Type: 
  Country: None (occurrence: None)
  Receive Date: 20071221
  Receipt Date: 20070214
  Transmission Date: 20080405
  Serious: No
  Sender: FDA-Public Use
  Company Number: A0639557A

PATIENT
  Age: 48 Year
  Sex: Female

DRUGS (1)
  1. FLONASE [Suspect]
     Indication: ILL-DEFINED DISORDER
     Dosage: 1PUFF TWICE PER DAY
     Route: 045
     Dates: start: 20070110

REACTIONS (1)
  - DRUG INEFFECTIVE [None]
